FAERS Safety Report 6814656-7 (Version None)
Quarter: 2010Q3

REPORT INFORMATION
  Report Type: 
  Country: None (occurrence: None)
  Receive Date: 20100702
  Receipt Date: 20091211
  Transmission Date: 20110219
  Serious: No
  Sender: FDA-Public Use
  Company Number: US-TYCO HEALTHCARE/MALLINCKRODT-T200902319

PATIENT
  Sex: Female
  Weight: 72.562 kg

DRUGS (1)
  1. TRAMADOL HCL [Suspect]
     Indication: PAIN
     Dosage: 50 MG, Q 6HRS PRN FOR PAIN
     Dates: start: 20091125, end: 20091128

REACTIONS (1)
  - DRUG SCREEN POSITIVE [None]
